FAERS Safety Report 7729416-2 (Version None)
Quarter: 2011Q3

REPORT INFORMATION
  Report Type: 
  Country: None (occurrence: None)
  Receive Date: 20110906
  Receipt Date: 20110901
  Transmission Date: 20111222
  Serious: Yes (Death)
  Sender: FDA-Public Use
  Company Number: US-MYLANLABS-2010S1003282

PATIENT
  Age: 39 Year
  Sex: Male
  Weight: 85.73 kg

DRUGS (9)
  1. NORTRIPTYLINE HCL [Concomitant]
     Route: 048
  2. BUPROPION HCL [Concomitant]
  3. LYRICA [Concomitant]
     Route: 048
  4. CLONAZEPAM [Concomitant]
  5. FENTANYL-100 [Suspect]
     Indication: PAIN
     Dosage: CHANGED Q3D
     Route: 062
     Dates: end: 20080304
  6. CARISOPRODOL [Concomitant]
     Route: 048
  7. HYDROCODONE [Concomitant]
     Indication: PAIN
     Dosage: 7.5MG/500MG
     Route: 048
  8. IMITREX [Concomitant]
     Indication: MIGRAINE
     Route: 058
  9. AZITHROMYCIN [Concomitant]

REACTIONS (4)
  - TOXICITY TO VARIOUS AGENTS [None]
  - OVERDOSE [None]
  - WRONG TECHNIQUE IN DRUG USAGE PROCESS [None]
  - INTENTIONAL DRUG MISUSE [None]
